FAERS Safety Report 7284712-0 (Version None)
Quarter: 2011Q1

REPORT INFORMATION
  Report Type: 
  Country: None (occurrence: None)
  Receive Date: 20110210
  Receipt Date: 20110129
  Transmission Date: 20110831
  Serious: No
  Sender: FDA-Public Use
  Company Number: US-BIOGENIDEC-2011BI004356

PATIENT
  Age: 47 Year
  Sex: Female

DRUGS (1)
  1. TYSABRI [Suspect]
     Indication: MULTIPLE SCLEROSIS
     Route: 042
     Dates: start: 20090331

REACTIONS (3)
  - GAIT DISTURBANCE [None]
  - MUSCULAR WEAKNESS [None]
  - MULTIPLE SCLEROSIS [None]
